FAERS Safety Report 7795179-8 (Version None)
Quarter: 2011Q4

REPORT INFORMATION
  Report Type: 
  Country: None (occurrence: None)
  Receive Date: 20111004
  Receipt Date: 20110927
  Transmission Date: 20120403
  Serious: Yes (Hospitalization)
  Sender: FDA-Public Use
  Company Number: NL-SANOFI-AVENTIS-2011SA063806

PATIENT
  Age: 83 Year
  Sex: Male

DRUGS (4)
  1. AVODART [Concomitant]
     Route: 048
  2. FUROSEMIDE [Suspect]
     Route: 048
     Dates: start: 20110919, end: 20110922
  3. EXELON [Concomitant]
     Route: 048
     Dates: start: 20091009
  4. TAMSULOSIN HCL [Concomitant]
     Route: 048
     Dates: start: 20110103

REACTIONS (1)
  - DELIRIUM [None]
